FAERS Safety Report 9497050 (Version 1)
Quarter: 2013Q3

REPORT INFORMATION
  Report Type: Spontaneous
  Country: US (occurrence: None)
  Receive Date: 20130903
  Receipt Date: 20130903
  Transmission Date: 20140515
  Serious: Yes (Disabling)
  Sender: FDA-Public Use
  Company Number: None

PATIENT
  Age: 69 Year
  Sex: Female
  Weight: 51.26 kg

DRUGS (1)
  1. CHOLESTYRAMINE [Suspect]
     Route: 048
     Dates: start: 20130829, end: 20130901

REACTIONS (2)
  - Hyperhidrosis [None]
  - Nasopharyngitis [None]
